FAERS Safety Report 4652609-8 (Version None)
Quarter: 2005Q2

REPORT INFORMATION
  Report Type: 
  Country: None (occurrence: None)
  Receive Date: 20050408
  Receipt Date: 20041218
  Transmission Date: 20051028
  Serious: No
  Sender: FDA-Public Use
  Company Number: 236154K04USA

PATIENT
  Age: 52 Year
  Sex: Female

DRUGS (3)
  1. REBIF [Suspect]
     Indication: MULTIPLE SCLEROSIS
     Dosage: 8.8 MCG, 3 IN 1 WEEKS, SUBCUTANEOUS
     Route: 058
     Dates: start: 20041206
  2. STRIDEX (ANTI-ACNE PREPARATIONS FOR TOPICAL USE) [Suspect]
     Dosage: TOPICAL
     Route: 061
     Dates: start: 20041217
  3. CLEARASIL (CLEARASIL) [Suspect]
     Dates: start: 20041217

REACTIONS (4)
  - HEADACHE [None]
  - INFLUENZA LIKE ILLNESS [None]
  - MYALGIA [None]
  - URTICARIA [None]
